FAERS Safety Report 10200666 (Version 1)
Quarter: 2014Q2

REPORT INFORMATION
  Report Type: Spontaneous
  Country: US (occurrence: US)
  Receive Date: 20140528
  Receipt Date: 20140528
  Transmission Date: 20141212
  Serious: No
  Sender: FDA-Public Use
  Company Number: US-TEVA-479397USA

PATIENT
  Age: 21 Year
  Sex: Female
  Weight: 59.02 kg

DRUGS (2)
  1. CAMRESE [Suspect]
     Indication: CONTRACEPTION
     Dates: start: 20140313
  2. VALTREX [Concomitant]
     Indication: HERPES VIRUS INFECTION

REACTIONS (2)
  - Metrorrhagia [Not Recovered/Not Resolved]
  - Dysmenorrhoea [Not Recovered/Not Resolved]
